FAERS Safety Report 24444693 (Version 2)
Quarter: 2024Q4

REPORT INFORMATION
  Report Type: Spontaneous
  Country: PT (occurrence: PT)
  Receive Date: 20241016
  Receipt Date: 20241017
  Transmission Date: 20250114
  Serious: No
  Sender: ROCHE
  Company Number: PT-ROCHE-2993203

PATIENT
  Age: 60 Year
  Sex: Female

DRUGS (1)
  1. RITUXIMAB [Suspect]
     Active Substance: RITUXIMAB
     Indication: Overlap syndrome
     Route: 042
     Dates: start: 201604

REACTIONS (1)
  - Drug hypersensitivity [Unknown]
